FAERS Safety Report 7123024-2 (Version None)
Quarter: 2010Q4

REPORT INFORMATION
  Report Type: 
  Country: None (occurrence: None)
  Receive Date: 20101125
  Receipt Date: 20101102
  Transmission Date: 20110411
  Serious: Yes (Hospitalization)
  Sender: FDA-Public Use
  Company Number: DE-AMGEN-DEUCT2010001723

PATIENT

DRUGS (4)
  1. ETANERCEPT [Suspect]
     Indication: RHEUMATOID ARTHRITIS
     Dosage: 50 MG, QWK
     Route: 058
     Dates: start: 20080422, end: 20100101
  2. ETANERCEPT [Suspect]
     Dosage: 50 MG, QWK
     Route: 058
     Dates: start: 20100101
  3. ARAVA [Concomitant]
     Dosage: UNKNOWN
  4. DRUGS FOR TREATMENT OF HYPOGLYCEMIA [Concomitant]

REACTIONS (1)
  - PROSTATIC OPERATION [None]
